FAERS Safety Report 11842870 (Version 1)
Quarter: 2015Q4

REPORT INFORMATION
  Report Type: Spontaneous
  Country: US (occurrence: US)
  Receive Date: 20151216
  Receipt Date: 20151216
  Transmission Date: 20160305
  Serious: Yes (Other)
  Sender: FDA-Public Use
  Company Number: US-ASTRAZENECA-2015SF26678

PATIENT
  Age: 77 Year
  Sex: Male
  Weight: 72.6 kg

DRUGS (1)
  1. NEXIUM 24HR [Suspect]
     Active Substance: ESOMEPRAZOLE MAGNESIUM
     Indication: GASTROOESOPHAGEAL REFLUX DISEASE
     Dosage: 22.3MG, PURPLE CAPSULE, ORALLY, TWO TABLETS A DAY
     Route: 048
     Dates: start: 20151125

REACTIONS (6)
  - Hypersensitivity [Unknown]
  - Dysphagia [Unknown]
  - Oropharyngeal pain [Unknown]
  - Lip swelling [Unknown]
  - Off label use [Unknown]
  - Rash [Not Recovered/Not Resolved]

NARRATIVE: CASE EVENT DATE: 201511
